FAERS Safety Report 8086801-X (Version None)
Quarter: 2012Q1

REPORT INFORMATION
  Report Type: 
  Country: None (occurrence: None)
  Receive Date: 20120128
  Receipt Date: 20110517
  Transmission Date: 20120608
  Serious: No
  Sender: FDA-Public Use
  Company Number: US-ABBOTT-11P-163-0726781-00

PATIENT
  Sex: Female
  Weight: 80.812 kg

DRUGS (2)
  1. HUMIRA [Suspect]
     Indication: PSORIASIS
     Route: 058
     Dates: start: 20100101
  2. UNKNOWN OINTMENT [Concomitant]
     Indication: PSORIASIS
     Route: 061

REACTIONS (3)
  - PSORIASIS [None]
  - PRURITUS [None]
  - BACK PAIN [None]
